FAERS Safety Report 10215689 (Version 1)
Quarter: 2014Q2

REPORT INFORMATION
  Report Type: Spontaneous
  Country: FR (occurrence: None)
  Receive Date: 20140602
  Receipt Date: 20140602
  Transmission Date: 20141212
  Serious: Yes (Hospitalization)
  Sender: FDA-Public Use
  Company Number: CLOZ20140019

PATIENT
  Age: 47 Year
  Sex: Female

DRUGS (3)
  1. CLONAZEPAM (CLONAZEPAM) (TABLETS) (CLONAZEPAM) [Suspect]
     Indication: PRODUCT USED FOR UNKNOWN INDICATION
     Route: 048
  2. ACETAMINOPHEN #2 (CODEINE PHOSPHATE, PARACETAMOL) (TABLETS) (CODEINE PHOSPHATE, PARACETAMOL) [Suspect]
     Indication: PRODUCT USED FOR UNKNOWN INDICATION
     Route: 048
  3. PIZOTIFEN (PIZOTIFEN) (UNKNOWN) (PIZOTIFEN) [Suspect]
     Indication: PRODUCT USED FOR UNKNOWN INDICATION

REACTIONS (1)
  - Acute generalised exanthematous pustulosis [None]
